FAERS Safety Report 22002661 (Version 1)
Quarter: 2023Q1

REPORT INFORMATION
  Report Type: Spontaneous
  Country: JP (occurrence: None)
  Receive Date: 20230217
  Receipt Date: 20230217
  Transmission Date: 20230418
  Serious: Yes (Hospitalization, Other)
  Sender: FDA-Public Use
  Company Number: JP-Merck Healthcare KGaA-9384178

PATIENT
  Age: 78 Year
  Sex: Male
  Weight: 53 kg

DRUGS (3)
  1. METGLUCO [Suspect]
     Active Substance: METFORMIN HYDROCHLORIDE
     Indication: Type 2 diabetes mellitus
     Route: 048
     Dates: end: 202204
  2. VOGLIBOSE [Suspect]
     Active Substance: VOGLIBOSE
     Indication: Type 2 diabetes mellitus
     Route: 048
     Dates: end: 202204
  3. TENELIGLIPTIN [Suspect]
     Active Substance: TENELIGLIPTIN
     Indication: Type 2 diabetes mellitus
     Route: 048
     Dates: end: 202204

REACTIONS (3)
  - Glycosylated haemoglobin increased [Recovered/Resolved]
  - Hemiplegia [Unknown]
  - Cerebral infarction [Unknown]

NARRATIVE: CASE EVENT DATE: 20220201
